FAERS Safety Report 6856261-2 (Version None)
Quarter: 2010Q2

REPORT INFORMATION
  Report Type: 
  Country: None (occurrence: None)
  Receive Date: 20100630
  Receipt Date: 20100325
  Transmission Date: 20101027
  Serious: No
  Sender: FDA-Public Use
  Company Number: 1000012763

PATIENT

DRUGS (1)
  1. BYSTOLIC [Suspect]
     Indication: BLOOD PRESSURE MANAGEMENT
     Dosage: ORAL;
     Route: 048

REACTIONS (1)
  - ASTHMA [None]
